FAERS Safety Report 11855893 (Version 2)
Quarter: 2016Q1

REPORT INFORMATION
  Report Type: Spontaneous
  Country: US (occurrence: US)
  Receive Date: 20151221
  Receipt Date: 20160122
  Transmission Date: 20160526
  Serious: Yes (Hospitalization, Other)
  Sender: FDA-Public Use
  Company Number: US-NOVOPROD-474176

PATIENT
  Age: 64 Year
  Sex: Female
  Weight: 51.25 kg

DRUGS (2)
  1. VAGIFEM LD [Suspect]
     Active Substance: ESTRADIOL
     Indication: HOT FLUSH
  2. VAGIFEM LD [Suspect]
     Active Substance: ESTRADIOL
     Indication: VULVOVAGINAL DRYNESS
     Dosage: 10 ?G, BIW
     Route: 067
     Dates: end: 201412

REACTIONS (2)
  - Oesophageal carcinoma [Unknown]
  - Uterine neoplasm [Recovered/Resolved]

NARRATIVE: CASE EVENT DATE: 2011
